FAERS Safety Report 7576924-3 (Version None)
Quarter: 2011Q2

REPORT INFORMATION
  Report Type: 
  Country: None (occurrence: None)
  Receive Date: 20110628
  Receipt Date: 20110621
  Transmission Date: 20111010
  Serious: Yes (Other)
  Sender: FDA-Public Use
  Company Number: US-JNJFOC-20110509279

PATIENT
  Sex: Female

DRUGS (7)
  1. LEVAQUIN [Suspect]
     Indication: BACTERIAL INFECTION
     Route: 048
     Dates: start: 20090201, end: 20090301
  2. LEVAQUIN [Suspect]
     Indication: PNEUMONIA
     Route: 048
  3. EFFEXOR [Concomitant]
     Indication: DEPRESSION
     Route: 065
  4. LEVAQUIN [Suspect]
     Indication: CHOLECYSTITIS INFECTIVE
     Route: 048
  5. REQUIP [Concomitant]
     Indication: RESTLESS LEGS SYNDROME
     Route: 048
  6. LEVAQUIN [Suspect]
     Indication: PRODUCT USED FOR UNKNOWN INDICATION
     Route: 042
  7. ZOLOFT [Concomitant]
     Indication: DEPRESSION
     Route: 065

REACTIONS (3)
  - TENDONITIS [None]
  - ROTATOR CUFF SYNDROME [None]
  - TENDON RUPTURE [None]
